FAERS Safety Report 17994401 (Version 1)
Quarter: 2020Q3

REPORT INFORMATION
  Report Type: Spontaneous
  Country: US (occurrence: US)
  Receive Date: 20200707
  Receipt Date: 20200707
  Transmission Date: 20201103
  Serious: Yes (Other)
  Sender: FDA-Public Use
  Company Number: None

PATIENT

DRUGS (1)
  1. SCENT THEORY ? KEEP IT CLEAN ? PURE CLEAN ANTI?BACTERIAL HAND SANITIZER [Suspect]
     Active Substance: ALCOHOL
     Dates: start: 20200517, end: 20200623

REACTIONS (4)
  - Gait inability [None]
  - Discomfort [None]
  - Depression [None]
  - Hypoaesthesia [None]
